FAERS Safety Report 11171600 (Version 2)
Quarter: 2015Q3

REPORT INFORMATION
  Report Type: Report from Study
  Country: US (occurrence: US)
  Receive Date: 20150608
  Receipt Date: 20150909
  Transmission Date: 20151125
  Serious: Yes (Other)
  Sender: FDA-Public Use
  Company Number: US-SA-2014SA084581

PATIENT
  Age: 58 Year
  Sex: Male

DRUGS (2)
  1. AMPYRA [Concomitant]
     Active Substance: DALFAMPRIDINE
  2. AUBAGIO [Suspect]
     Active Substance: TERIFLUNOMIDE
     Indication: MULTIPLE SCLEROSIS
     Route: 048
     Dates: start: 20140523

REACTIONS (15)
  - Condition aggravated [Unknown]
  - Fatigue [Unknown]
  - Muscular weakness [Unknown]
  - Temperature intolerance [Unknown]
  - Memory impairment [Unknown]
  - Infection susceptibility increased [Unknown]
  - JC virus test positive [Unknown]
  - Head discomfort [Unknown]
  - Visual acuity reduced [Unknown]
  - Hypoaesthesia [Unknown]
  - Muscle spasms [Unknown]
  - Micturition urgency [Recovered/Resolved]
  - Inappropriate schedule of drug administration [Unknown]
  - Micturition urgency [Recovering/Resolving]
  - Drug dose omission [Unknown]

NARRATIVE: CASE EVENT DATE: 2015
